FAERS Safety Report 10223419 (Version 1)
Quarter: 2014Q2

REPORT INFORMATION
  Report Type: Spontaneous
  Country: US (occurrence: None)
  Receive Date: 20140606
  Receipt Date: 20140606
  Transmission Date: 20141212
  Serious: Yes (Other)
  Sender: FDA-Public Use
  Company Number: None

PATIENT
  Age: 67 Year
  Sex: Male
  Weight: 78.93 kg

DRUGS (8)
  1. INVOKANA [Suspect]
     Indication: TYPE 2 DIABETES MELLITUS
     Dosage: 1, QD, ORAL
     Route: 048
     Dates: start: 20140208, end: 20140329
  2. GLIMEPERIDE [Concomitant]
  3. JANUVIA [Concomitant]
  4. DILTIAZEM [Concomitant]
  5. METFORMIN [Concomitant]
  6. CLONIDINE PATCH [Concomitant]
  7. ACTOS [Concomitant]
  8. CHOLECALCIFEROL [Concomitant]

REACTIONS (1)
  - Back pain [None]
